FAERS Safety Report 9244018 (Version 1)
Quarter: 2013Q1

REPORT INFORMATION
  Report Type: Spontaneous
  Country: US (occurrence: None)
  Receive Date: 20121123
  Receipt Date: 20121123
  Transmission Date: 20140127
  Serious: No
  Sender: FDA-Public Use
  Company Number: 362679

PATIENT
  Age: 48 Year
  Sex: Female

DRUGS (3)
  1. VICTOZA [Suspect]
     Indication: TYPE 1 DIABETES MELLITUS
     Route: 058
     Dates: start: 20121005, end: 20121011
  2. NOVOTWIST ( NOVOTWIST) [Concomitant]
  3. NOVOFINE R 32 ( NEEDLE) [Concomitant]

REACTIONS (5)
  - Nasopharyngitis [None]
  - Dysgeusia [None]
  - Diarrhoea [None]
  - Injection site erythema [None]
  - Injection site urticaria [None]
